FAERS Safety Report 8520033 (Version 2)
Quarter: 2013Q2

REPORT INFORMATION
  Report Type: Spontaneous
  Country: US (occurrence: None)
  Receive Date: 20120316
  Receipt Date: 20121130
  Transmission Date: 20140414
  Serious: Yes (Other)
  Sender: FDA-Public Use
  Company Number: PHEH2009US01063

PATIENT
  Age: 64 Year
  Sex: Female

DRUGS (3)
  1. TEKTURNA [Suspect]
     Dosage: 150 MG, QD, ORAL
     Route: 048
     Dates: start: 20090115, end: 20090119
  2. VIVELLE-DOT (ESTRADIOL) [Concomitant]
  3. ESTRADERM  (ESTRADIOL) [Concomitant]

REACTIONS (2)
  - ANGIOEDEMA [None]
  - Dyspnoea [None]
